FAERS Safety Report 9726107 (Version 2)
Quarter: 2013Q4

REPORT INFORMATION
  Report Type: Spontaneous
  Country: US (occurrence: US)
  Receive Date: 20131203
  Receipt Date: 20131211
  Transmission Date: 20140711
  Serious: Yes (Other)
  Sender: FDA-Public Use
  Company Number: US-BAYER-2013-144414

PATIENT
  Age: 25 Year
  Sex: Female

DRUGS (1)
  1. MIRENA [Suspect]
     Indication: CONTRACEPTION
     Dosage: ^20 ?G/D, CONT
     Route: 015
     Dates: start: 20130923

REACTIONS (15)
  - Genital haemorrhage [None]
  - Loss of consciousness [None]
  - Hypoaesthesia [None]
  - Paraesthesia [None]
  - Back pain [None]
  - Abdominal pain lower [None]
  - Headache [None]
  - Anger [None]
  - Depression [None]
  - Fatigue [None]
  - Clumsiness [None]
  - Joint injury [None]
  - Night sweats [None]
  - Cough [None]
  - Oropharyngeal pain [Recovered/Resolved]
